FAERS Safety Report 5893238-8 (Version None)
Quarter: 2008Q3

REPORT INFORMATION
  Report Type: 
  Country: None (occurrence: None)
  Receive Date: 20080922
  Receipt Date: 20080922
  Transmission Date: 20090109
  Serious: Yes (Life-Threatening, Hospitalization)
  Sender: FDA-Public Use
  Company Number: None

PATIENT
  Age: 50 Year
  Sex: Female
  Weight: 65.7716 kg

DRUGS (1)
  1. LEVAQUIN [Suspect]
     Indication: PNEUMONIA
     Dosage: 1 TABLET A DAY PO
     Route: 048
     Dates: start: 20080906, end: 20080910

REACTIONS (3)
  - EPISTAXIS [None]
  - PETECHIAE [None]
  - PLATELET COUNT DECREASED [None]
